APPROVED DRUG PRODUCT: TOPIRAMATE
Active Ingredient: TOPIRAMATE
Strength: 25MG/ML
Dosage Form/Route: SOLUTION;ORAL
Application: A217795 | Product #001 | TE Code: AB
Applicant: ALKEM LABORATORIES LTD
Approved: Oct 31, 2024 | RLD: No | RS: No | Type: RX

EXCLUSIVITY:
Code: PC | Date: Jan 5, 2026